FAERS Safety Report 5931419-5 (Version None)
Quarter: 2008Q4

REPORT INFORMATION
  Report Type: 
  Country: None (occurrence: None)
  Receive Date: 20081024
  Receipt Date: 20081024
  Transmission Date: 20090506
  Serious: Yes (Disabling)
  Sender: FDA-Public Use
  Company Number: None

PATIENT
  Age: 39 Year
  Sex: Male
  Weight: 192.7787 kg

DRUGS (1)
  1. ROPIVACAINE [Suspect]
     Indication: NERVE BLOCK
     Dosage: 30 ML ONCE OTHER
     Route: 050
     Dates: start: 20080909, end: 20080909

REACTIONS (1)
  - CONVULSION [None]
